FAERS Safety Report 12402984 (Version 5)
Quarter: 2021Q4

REPORT INFORMATION
  Report Type: Spontaneous
  Country: FR (occurrence: FR)
  Receive Date: 20160525
  Receipt Date: 20211219
  Transmission Date: 20220304
  Serious: Yes (Congenital Anomaly, Other)
  Sender: FDA-Public Use
  Company Number: FR-ABBVIE-16P-056-1635347-00

PATIENT
  Sex: Male

DRUGS (1)
  1. VALPROATE SODIUM [Suspect]
     Active Substance: VALPROATE SODIUM
     Indication: Maternal exposure timing unspecified
     Route: 064
     Dates: start: 20010801, end: 20020403

REACTIONS (19)
  - Aphasia [Unknown]
  - Behaviour disorder [Unknown]
  - Dysplasia [Unknown]
  - Language disorder [Unknown]
  - Congenital jaw malformation [Unknown]
  - Astigmatism [Unknown]
  - Myopia [Unknown]
  - Knee deformity [Unknown]
  - Fine motor skill dysfunction [Unknown]
  - Dyslexia [Unknown]
  - Intelligence test abnormal [Unknown]
  - Sleep disorder [Unknown]
  - Oropharyngeal discomfort [Unknown]
  - Ear disorder [Unknown]
  - Nasal disorder [Unknown]
  - Anxiety [Unknown]
  - Learning disorder [Unknown]
  - Deafness unilateral [Unknown]
  - Foetal exposure during pregnancy [Unknown]
